FAERS Safety Report 18331302 (Version 5)
Quarter: 2021Q4

REPORT INFORMATION
  Report Type: Spontaneous
  Country: US (occurrence: US)
  Receive Date: 20200930
  Receipt Date: 20211210
  Transmission Date: 20220303
  Serious: No
  Sender: FDA-Public Use
  Company Number: US-PFIZER INC-2020368261

PATIENT

DRUGS (1)
  1. DEXTROSE [Suspect]
     Active Substance: DEXTROSE
     Dosage: UNK (DEXTROSE 50% 25GM 50ML LIFESHIELD SYRINGE 1013A)

REACTIONS (1)
  - Device breakage [Unknown]
